FAERS Safety Report 12680423 (Version 2)
Quarter: 2016Q3

REPORT INFORMATION
  Report Type: Spontaneous
  Country: AU (occurrence: AU)
  Receive Date: 20160824
  Receipt Date: 20160902
  Transmission Date: 20161109
  Serious: Yes (Hospitalization)
  Sender: FDA-Public Use
  Company Number: AU-PFIZER INC-2016394281

PATIENT
  Age: 80 Year
  Sex: Male

DRUGS (6)
  1. MINAX /00376902/ [Concomitant]
     Dosage: UNK
     Dates: start: 201506
  2. DITROPAN [Concomitant]
     Active Substance: OXYBUTYNIN CHLORIDE
     Dosage: UNK
     Dates: start: 201602
  3. TEGRETOL [Concomitant]
     Active Substance: CARBAMAZEPINE
     Indication: GENERALISED TONIC-CLONIC SEIZURE
     Dosage: 100 MG, 2X/DAY
     Dates: start: 198205
  4. DILANTIN [Suspect]
     Active Substance: PHENYTOIN
     Indication: GENERALISED TONIC-CLONIC SEIZURE
     Dosage: 4 X 40MG INFATABS IN THE MORNING AND 2 X 50MG INFATABS AT NIGHT
     Dates: start: 20160814, end: 20160818
  5. DILANTIN [Suspect]
     Active Substance: PHENYTOIN
     Indication: GENERALISED TONIC-CLONIC SEIZURE
     Dosage: 200MG X 2 CAPSULES IN THE MORNING AND 1 X 200MG AT NIGHT
     Dates: start: 198205
  6. SOMAC [Concomitant]
     Active Substance: PANTOPRAZOLE SODIUM
     Dosage: UNK
     Dates: start: 2010

REACTIONS (6)
  - Fall [Not Recovered/Not Resolved]
  - Product size issue [Recovered/Resolved]
  - Myalgia [Not Recovered/Not Resolved]
  - Retching [Recovered/Resolved]
  - Product difficult to swallow [Recovered/Resolved]
  - Vertigo [Not Recovered/Not Resolved]

NARRATIVE: CASE EVENT DATE: 20160814
